FAERS Safety Report 5130674-1 (Version None)
Quarter: 2006Q4

REPORT INFORMATION
  Report Type: 
  Country: None (occurrence: None)
  Receive Date: 20061019
  Receipt Date: 20000403
  Transmission Date: 20070319
  Serious: Yes (Hospitalization)
  Sender: FDA-Public Use
  Company Number: US-ROCHE-233363

PATIENT
  Age: 52 Year
  Sex: Female
  Weight: 74.8 kg

DRUGS (4)
  1. XENICAL [Suspect]
     Indication: OBESITY
     Route: 048
     Dates: start: 20000330, end: 20000715
  2. XENICAL [Suspect]
     Route: 048
     Dates: start: 20010315
  3. XENICAL [Suspect]
     Route: 048
     Dates: start: 20060915
  4. CARDURA [Concomitant]

REACTIONS (7)
  - ABDOMINAL PAIN [None]
  - ALOPECIA [None]
  - GASTROOESOPHAGEAL REFLUX DISEASE [None]
  - HERNIA [None]
  - RECTAL DISCHARGE [None]
  - STEATORRHOEA [None]
  - URINARY TRACT INFECTION [None]
